FAERS Safety Report 14712466 (Version 1)
Quarter: 2018Q2

REPORT INFORMATION
  Report Type: Spontaneous
  Country: US (occurrence: US)
  Receive Date: 20180404
  Receipt Date: 20180404
  Transmission Date: 20180711
  Serious: No
  Sender: FDA-Public Use
  Company Number: US-TEVA-780512ACC

PATIENT
  Age: 69 Year
  Sex: Female

DRUGS (2)
  1. MIMVEY LO [Suspect]
     Active Substance: ESTRADIOL\NORETHINDRONE ACETATE
     Indication: INSOMNIA
     Dosage: DOSE STRENGTH: 0.5 MG/0.1 MG
     Route: 065
  2. XANAX [Concomitant]
     Active Substance: ALPRAZOLAM

REACTIONS (6)
  - Poor quality sleep [Unknown]
  - Nervousness [Unknown]
  - Product use in unapproved indication [Unknown]
  - Drug dose omission [Unknown]
  - Anxiety [Unknown]
  - Nightmare [Unknown]
